FAERS Safety Report 6267635-5 (Version None)
Quarter: 2009Q3

REPORT INFORMATION
  Report Type: 
  Country: None (occurrence: None)
  Receive Date: 20090714
  Receipt Date: 20090702
  Transmission Date: 20100115
  Serious: Yes (Death, Other)
  Sender: FDA-Public Use
  Company Number: FR-ELI_LILLY_AND_COMPANY-FR200906006924

PATIENT
  Age: 55 Year
  Sex: Female

DRUGS (4)
  1. PROZAC [Suspect]
     Indication: BIPOLAR DISORDER
     Dosage: 40 MG, DAILY (1/D)
     Route: 048
     Dates: start: 20080201
  2. VALPROIC ACID [Concomitant]
     Indication: BIPOLAR DISORDER
     Dosage: UNK, UNK
     Route: 048
  3. ZOPLICONE [Concomitant]
     Indication: BIPOLAR DISORDER
     Route: 048
  4. ALPRAZOLAM [Concomitant]
     Indication: BIPOLAR DISORDER
     Route: 048

REACTIONS (4)
  - BALANCE DISORDER [None]
  - CEREBROVASCULAR ACCIDENT [None]
  - DEATH [None]
  - OFF LABEL USE [None]
